FAERS Safety Report 8302600-5 (Version None)
Quarter: 2012Q2

REPORT INFORMATION
  Report Type: 
  Country: None (occurrence: None)
  Receive Date: 20120418
  Receipt Date: 20120410
  Transmission Date: 20120825
  Serious: Yes (Hospitalization, Disabling, Other)
  Sender: FDA-Public Use
  Company Number: 2010MA001065

PATIENT
  Sex: Female
  Weight: 98.8842 kg

DRUGS (28)
  1. AZITHROMYCIN [Concomitant]
  2. BENADRYL [Concomitant]
  3. CEFTIN [Concomitant]
  4. LANTUS [Concomitant]
  5. LYRICA [Concomitant]
  6. KEPPRA [Concomitant]
  7. LISINOPRIL [Concomitant]
  8. BOTOX [Concomitant]
  9. FAMVIR [Concomitant]
  10. RESTORIL [Concomitant]
  11. TEMAZEPAM [Concomitant]
  12. TRAMADOL HCL [Concomitant]
  13. METOCLOPRAMIDE [Suspect]
     Indication: DIABETIC GASTROPARESIS
     Dosage: 10 MG; 2 TAB BEFORE MEALS AND AT BEDTIME; PO
     Route: 048
     Dates: start: 20061019, end: 20081001
  14. ELAVIL [Concomitant]
  15. NEURONTIN [Concomitant]
  16. TYLENOL (CAPLET) [Concomitant]
  17. HUMALOG [Concomitant]
  18. INSULIN [Concomitant]
  19. TETRABENAZINE [Concomitant]
  20. ANTIBIOTIC [Concomitant]
  21. HYDROCODONE BITARTRATE [Concomitant]
  22. LOVASTATIN [Concomitant]
  23. AMITRIPTYLINE HCL [Concomitant]
  24. METOPROLOL TARTRATE [Concomitant]
  25. PERCOCET [Concomitant]
  26. PREDNISONE TAB [Concomitant]
  27. ASPIRIN [Concomitant]
  28. MOM [Concomitant]

REACTIONS (63)
  - TREMOR [None]
  - NEURALGIA [None]
  - TOOTH ABSCESS [None]
  - TOOTH EXTRACTION [None]
  - FALL [None]
  - FAILURE TO THRIVE [None]
  - BLOOD UREA DECREASED [None]
  - HYPOGLYCAEMIA [None]
  - HYPERTENSION [None]
  - AREFLEXIA [None]
  - DEPRESSION [None]
  - ALTERED STATE OF CONSCIOUSNESS [None]
  - EXTRAPYRAMIDAL DISORDER [None]
  - EMOTIONAL DISORDER [None]
  - TOOTHACHE [None]
  - MASTICATION DISORDER [None]
  - TREATMENT NONCOMPLIANCE [None]
  - ANGINA PECTORIS [None]
  - DYSPNOEA [None]
  - PARAESTHESIA [None]
  - ARTHROPATHY [None]
  - ATRIAL FIBRILLATION [None]
  - SOMNOLENCE [None]
  - REFUSAL OF TREATMENT BY PATIENT [None]
  - SPEECH DISORDER [None]
  - SYNCOPE [None]
  - INJURY [None]
  - DYSKINESIA [None]
  - TOOTH FRACTURE [None]
  - NEUROPATHY PERIPHERAL [None]
  - DIABETES MELLITUS INADEQUATE CONTROL [None]
  - HYPERTENSIVE HEART DISEASE [None]
  - CEREBROVASCULAR DISORDER [None]
  - LOSS OF CONSCIOUSNESS [None]
  - JOINT SWELLING [None]
  - TARDIVE DYSKINESIA [None]
  - TOOTH DISORDER [None]
  - ASTHENIA [None]
  - ILL-DEFINED DISORDER [None]
  - CHEST PAIN [None]
  - ECONOMIC PROBLEM [None]
  - PAIN IN JAW [None]
  - GAIT DISTURBANCE [None]
  - TEMPOROMANDIBULAR JOINT SYNDROME [None]
  - MENTAL STATUS CHANGES [None]
  - NAUSEA [None]
  - MALNUTRITION [None]
  - DIZZINESS [None]
  - WEIGHT DECREASED [None]
  - DENTAL CARIES [None]
  - TONGUE BITING [None]
  - MOBILITY DECREASED [None]
  - DEHYDRATION [None]
  - ORTHOSTATIC HYPOTENSION [None]
  - BLOOD GLUCOSE INCREASED [None]
  - BRUXISM [None]
  - RESPIRATORY FAILURE [None]
  - VOMITING [None]
  - HALLUCINATION [None]
  - BLOOD CREATININE DECREASED [None]
  - BLOOD POTASSIUM DECREASED [None]
  - HEART RATE INCREASED [None]
  - CLAVICLE FRACTURE [None]
